FAERS Safety Report 6903161-5 (Version None)
Quarter: 2010Q3

REPORT INFORMATION
  Report Type: 
  Country: None (occurrence: None)
  Receive Date: 20100803
  Receipt Date: 20080619
  Transmission Date: 20110219
  Serious: No
  Sender: FDA-Public Use
  Company Number: US-PFIZER INC-2008052171

PATIENT
  Sex: Female

DRUGS (25)
  1. LYRICA [Suspect]
     Indication: SCIATICA
     Dates: start: 20080301
  2. PLENDIL [Concomitant]
  3. PLENDIL [Concomitant]
  4. LASIX [Concomitant]
  5. LASIX [Concomitant]
  6. PRINIVIL [Concomitant]
  7. PRINIVIL [Concomitant]
  8. ACIPHEX [Concomitant]
  9. ACIPHEX [Concomitant]
  10. ALL OTHER THERAPEUTIC PRODUCTS [Concomitant]
  11. ALL OTHER THERAPEUTIC PRODUCTS [Concomitant]
  12. CYMBALTA [Concomitant]
  13. CYMBALTA [Concomitant]
  14. LIPITOR [Concomitant]
  15. LIPITOR [Concomitant]
  16. CATAPRES [Concomitant]
  17. CATAPRES [Concomitant]
  18. RESTORIL [Concomitant]
  19. RESTORIL [Concomitant]
  20. ASPIRIN [Concomitant]
  21. ASPIRIN [Concomitant]
  22. TROSPIUM CHLORIDE [Concomitant]
  23. TROSPIUM CHLORIDE [Concomitant]
  24. CORTICOSTEROIDS [Concomitant]
  25. CORTICOSTEROIDS [Concomitant]

REACTIONS (5)
  - DRUG INEFFECTIVE [None]
  - DRY MOUTH [None]
  - HYPOAESTHESIA [None]
  - PARAESTHESIA [None]
  - WEIGHT INCREASED [None]
